FAERS Safety Report 9526065 (Version 1)
Quarter: 2013Q1

REPORT INFORMATION
  Report Type: Spontaneous
  Country: US (occurrence: None)
  Receive Date: 20130314
  Receipt Date: 20130314
  Transmission Date: 20140127
  Serious: No
  Sender: FDA-Public Use
  Company Number: 1210USA008236

PATIENT
  Age: 62 Year
  Sex: Male

DRUGS (3)
  1. PEGINTRON [Suspect]
     Indication: HEPATITIS C
     Dosage: 0.5/150, SUBCUTANEOUS
     Route: 058
     Dates: start: 20121009, end: 20121218
  2. RIBAVIRIN (RIBAVIRIN) CAPSULE [Suspect]
     Indication: HEPATITIS C
     Route: 048
     Dates: start: 20121009
  3. VICTRELIS [Suspect]
     Indication: HEPATITIS C
     Route: 048
     Dates: start: 20121107

REACTIONS (5)
  - Anaemia [None]
  - Leukopenia [None]
  - Somnolence [None]
  - Fatigue [None]
  - Injection site reaction [None]
